FAERS Safety Report 10895973 (Version 1)
Quarter: 2015Q1

REPORT INFORMATION
  Report Type: Spontaneous
  Country: JP (occurrence: JP)
  Receive Date: 20150308
  Receipt Date: 20150308
  Transmission Date: 20150721
  Serious: Yes (Other)
  Sender: FDA-Public Use
  Company Number: JP-TEVA-545677ISR

PATIENT
  Age: 51 Year
  Sex: Male

DRUGS (6)
  1. AZTREONAM. [Suspect]
     Active Substance: AZTREONAM
     Indication: HEPATIC AMOEBIASIS
     Route: 065
  2. CIPROFLOXACIN. [Suspect]
     Active Substance: CIPROFLOXACIN
     Indication: HEPATIC AMOEBIASIS
     Route: 065
  3. CLINDAMYCIN [Suspect]
     Active Substance: CLINDAMYCIN\CLINDAMYCIN PHOSPHATE
     Indication: HEPATIC AMOEBIASIS
     Route: 065
  4. PAROMOMYCIN [Suspect]
     Active Substance: PAROMOMYCIN
     Indication: HEPATIC AMOEBIASIS
     Dosage: 1500 MILLIGRAM DAILY;
     Route: 065
  5. CEFMETAZOLE [Suspect]
     Active Substance: CEFMETAZOLE
     Indication: HEPATIC AMOEBIASIS
     Route: 065
  6. CEFEPIME [Suspect]
     Active Substance: CEFEPIME\CEFEPIME HYDROCHLORIDE
     Indication: HEPATIC AMOEBIASIS
     Route: 065

REACTIONS (1)
  - Enterocolitis [Unknown]
